FAERS Safety Report 4525407-3 (Version None)
Quarter: 2004Q4

REPORT INFORMATION
  Report Type: 
  Country: None (occurrence: None)
  Receive Date: 20041213
  Receipt Date: 20041104
  Transmission Date: 20050328
  Serious: Yes (Hospitalization)
  Sender: FDA-Public Use
  Company Number: JP-GLAXOSMITHKLINE-B0351246A

PATIENT
  Age: 52 Year
  Sex: Female

DRUGS (4)
  1. PAXIL [Suspect]
     Indication: DEPRESSION
     Dosage: 10MG PER DAY
     Route: 048
     Dates: start: 20041018, end: 20041020
  2. HALCION [Concomitant]
     Indication: INSOMNIA
     Dosage: .25MG PER DAY
     Route: 048
     Dates: start: 20040904
  3. GASMOTIN [Concomitant]
     Indication: STOMACH DISCOMFORT
     Dosage: 15MG PER DAY
     Route: 048
     Dates: start: 20041018
  4. RESTAS [Concomitant]
     Indication: DEPRESSION
     Route: 048
     Dates: end: 20041005

REACTIONS (2)
  - DIZZINESS [None]
  - DYSSTASIA [None]
